FAERS Safety Report 6125732-9 (Version None)
Quarter: 2009Q1

REPORT INFORMATION
  Report Type: 
  Country: None (occurrence: None)
  Receive Date: 20090320
  Receipt Date: 20090130
  Transmission Date: 20090719
  Serious: Yes (Death)
  Sender: FDA-Public Use
  Company Number: US-TYCO HEALTHCARE/MALLINCKRODT-T200900486

PATIENT
  Age: 43 Year
  Sex: Male

DRUGS (8)
  1. MORPHINE [Suspect]
     Route: 048
  2. AMITRIPTYLINE [Suspect]
     Route: 048
  3. LISINOPRIL [Suspect]
     Route: 048
  4. NAPROXEN [Suspect]
     Route: 048
  5. BACLOFEN [Suspect]
     Route: 048
  6. GABAPENTIN [Suspect]
     Route: 048
  7. VENLAFAXINE HCL [Suspect]
     Route: 048
  8. ETHANOL [Suspect]
     Route: 048

REACTIONS (2)
  - CARDIO-RESPIRATORY ARREST [None]
  - COMPLETED SUICIDE [None]
